FAERS Safety Report 6083115-4 (Version None)
Quarter: 2009Q1

REPORT INFORMATION
  Report Type: 
  Country: None (occurrence: None)
  Receive Date: 20090213
  Receipt Date: 20090213
  Transmission Date: 20090719
  Serious: Yes (Hospitalization, Other)
  Sender: FDA-Public Use
  Company Number: None

PATIENT
  Age: 83 Year
  Sex: Male
  Weight: 72.5755 kg

DRUGS (1)
  1. REMICADE [Suspect]
     Indication: ARTHRALGIA
     Dosage: INFUSION 3/08 INFUSION 6/08 INFUSION 5/08 INFUSION 7/08
     Dates: start: 20080301, end: 20080801

REACTIONS (7)
  - DIARRHOEA [None]
  - INFUSION RELATED REACTION [None]
  - MALAISE [None]
  - NAUSEA [None]
  - RASH [None]
  - VOMITING [None]
  - WEIGHT DECREASED [None]
